FAERS Safety Report 21481048 (Version 1)
Quarter: 2022Q4

REPORT INFORMATION
  Report Type: Spontaneous
  Country: None (occurrence: US)
  Receive Date: 20221019
  Receipt Date: 20221019
  Transmission Date: 20230112
  Serious: No
  Sender: FDA-Public Use
  Company Number: US-Stason Pharmaceuticals, Inc.-2133988

PATIENT
  Sex: Male

DRUGS (1)
  1. CAPTOPRIL [Suspect]
     Active Substance: CAPTOPRIL
     Indication: Product used for unknown indication
     Route: 065

REACTIONS (3)
  - Product odour abnormal [Unknown]
  - Product substitution issue [Unknown]
  - Off label use [Unknown]
